FAERS Safety Report 13688752 (Version 1)
Quarter: 2017Q2

REPORT INFORMATION
  Report Type: Report from Study
  Country: US (occurrence: BR)
  Receive Date: 20170626
  Receipt Date: 20170626
  Transmission Date: 20170830
  Serious: Yes (Hospitalization)
  Sender: FDA-Public Use
  Company Number: US-SUNOVION-2017SUN002687

PATIENT
  Sex: Female
  Weight: 43 kg

DRUGS (1)
  1. INDACATEROL AND GLYCOPYRROLATE [Suspect]
     Active Substance: GLYCOPYRROLATE\INDACATEROL MALEATE
     Indication: PRODUCT USED FOR UNKNOWN INDICATION
     Dosage: (INDACATEROL 110 UG/ GLYCOPYRRONIUM BROMIDE 50 UG ) QD
     Route: 055

REACTIONS (6)
  - Catarrh [Unknown]
  - Blood potassium decreased [Recovering/Resolving]
  - Hypertension [Unknown]
  - Condition aggravated [Unknown]
  - Bronchospasm [Unknown]
  - Blood sodium decreased [Recovering/Resolving]
